FAERS Safety Report 10950648 (Version 2)
Quarter: 2015Q2

REPORT INFORMATION
  Report Type: Spontaneous
  Country: FR (occurrence: FR)
  Receive Date: 20150324
  Receipt Date: 20150416
  Transmission Date: 20150821
  Serious: Yes (Hospitalization)
  Sender: FDA-Public Use
  Company Number: FR-MYLANLABS-2015M1008006

PATIENT

DRUGS (18)
  1. AMOXICILLINE ACIDE CLAVULANIQUE MYLAN 1 G/125 MG, ADULTES [Concomitant]
     Indication: PRODUCT USED FOR UNKNOWN INDICATION
     Dosage: 1 DF, TID
     Route: 048
     Dates: start: 20150306, end: 20150312
  2. DAFALGAN [Concomitant]
     Active Substance: ACETAMINOPHEN
     Indication: PRODUCT USED FOR UNKNOWN INDICATION
     Dosage: 2 DF, TID
     Route: 048
     Dates: start: 20150306
  3. ALPRAZOLAM MYLAN 0.25 MG COMPRIM? S?CABLE [Concomitant]
     Active Substance: ALPRAZOLAM
     Dosage: 0.5 DF, QD
     Dates: start: 20150313
  4. BUDESONIDE MYLAN 1 MG/2ML [Concomitant]
     Indication: PRODUCT USED FOR UNKNOWN INDICATION
     Dosage: 1 DF, TID
     Route: 055
     Dates: start: 20150306, end: 20150306
  5. BUDESONIDE MYLAN 1 MG/2ML [Concomitant]
     Dosage: 1 UNK, UNK
     Route: 055
     Dates: start: 20150306, end: 20150310
  6. FRAGMINE [Concomitant]
     Active Substance: DALTEPARIN SODIUM
     Dosage: 1 DF, QD
     Route: 058
     Dates: start: 20150320, end: 20150327
  7. IPRATROPIUM MYLAN [Suspect]
     Active Substance: IPRATROPIUM
     Indication: PRODUCT USED FOR UNKNOWN INDICATION
     Dosage: UNK
     Dates: start: 20150310, end: 20150311
  8. CORDARONE [Concomitant]
     Active Substance: AMIODARONE HYDROCHLORIDE
     Indication: CARDIOMYOPATHY
     Dosage: 200 MG, QD
     Dates: start: 20150306
  9. TOPALGIC                           /00599202/ [Concomitant]
     Active Substance: TRAMADOL
     Indication: PRODUCT USED FOR UNKNOWN INDICATION
     Dosage: 50 MG, TID
     Route: 048
     Dates: start: 20150317, end: 20150320
  10. TRAMADOL [Concomitant]
     Active Substance: TRAMADOL
     Indication: PRODUCT USED FOR UNKNOWN INDICATION
     Dosage: 1 DF, BID
     Route: 048
     Dates: start: 20150306, end: 20150317
  11. FRAGMINE [Concomitant]
     Active Substance: DALTEPARIN SODIUM
     Indication: CARDIOMYOPATHY
     Dosage: 1 DF, QD
     Route: 058
     Dates: start: 20150306, end: 20150317
  12. FRAGMINE [Concomitant]
     Active Substance: DALTEPARIN SODIUM
     Dosage: 1 DF, QD
     Route: 058
     Dates: start: 20150317, end: 20150320
  13. ALPRAZOLAM MYLAN 0.25 MG COMPRIM? S?CABLE [Concomitant]
     Active Substance: ALPRAZOLAM
     Indication: ANXIETY
     Dosage: 0.5 DF, QD
     Route: 048
     Dates: start: 20150308, end: 20150313
  14. CALCIDOSE VITAMINE D [Concomitant]
     Active Substance: CALCIUM\CHOLECALCIFEROL
     Indication: PRODUCT USED FOR UNKNOWN INDICATION
     Dosage: 2 DF, QD
     Route: 048
     Dates: start: 20150306
  15. TERBUTALINE ARROW [Suspect]
     Active Substance: TERBUTALINE
     Indication: PRODUCT USED FOR UNKNOWN INDICATION
     Dosage: UNK
     Route: 055
     Dates: start: 20150310, end: 20150311
  16. KARDEGIC [Concomitant]
     Active Substance: ASPIRIN LYSINE
     Indication: PRODUCT USED FOR UNKNOWN INDICATION
     Dosage: 75 MG, QD
     Route: 048
     Dates: start: 20150306
  17. PERINDOPRIL ARROW [Concomitant]
     Active Substance: PERINDOPRIL
     Indication: PRODUCT USED FOR UNKNOWN INDICATION
     Dosage: 2 MG, QD
     Route: 048
     Dates: start: 20150306
  18. MOVICOL [Concomitant]
     Active Substance: POLYETHYLENE GLYCOL 3350\POTASSIUM CHLORIDE\SODIUM BICARBONATE\SODIUM CHLORIDE
     Indication: PRODUCT USED FOR UNKNOWN INDICATION
     Dosage: 1 DF, BID
     Route: 048
     Dates: start: 20150306

REACTIONS (8)
  - Cardiac failure [Recovered/Resolved]
  - Bronchospasm paradoxical [Recovered/Resolved]
  - Tremor [Recovered/Resolved]
  - Tachycardia [Recovered/Resolved]
  - Cough [Recovered/Resolved]
  - Hyperhidrosis [Recovered/Resolved]
  - Salivary hypersecretion [Recovered/Resolved]
  - Erythema [Recovered/Resolved]

NARRATIVE: CASE EVENT DATE: 20150310
